FAERS Safety Report 21649128 (Version 1)
Quarter: 2022Q4

REPORT INFORMATION
  Report Type: Spontaneous
  Country: US (occurrence: None)
  Receive Date: 20221123
  Receipt Date: 20221123
  Transmission Date: 20230113
  Serious: No
  Sender: FDA-Public Use
  Company Number: None

PATIENT
  Age: 45 Year
  Sex: Female
  Weight: 103.42 kg

DRUGS (18)
  1. KISQALI [Suspect]
     Active Substance: RIBOCICLIB
     Dosage: 600MGH ONCE DAILY ORAL
     Route: 048
  2. ALBUTEROL [Concomitant]
     Active Substance: ALBUTEROL
  3. BACLOFEN [Concomitant]
     Active Substance: BACLOFEN
  4. EFFEXOR XR [Concomitant]
     Active Substance: VENLAFAXINE HYDROCHLORIDE
  5. FEMARA [Concomitant]
     Active Substance: LETROZOLE
  6. GABAPENTIN [Concomitant]
     Active Substance: GABAPENTIN
  7. GEMIFBROZIL [Concomitant]
  8. IBUPROFEN [Concomitant]
     Active Substance: IBUPROFEN
  9. LORAZEPAM [Concomitant]
     Active Substance: LORAZEPAM
  10. METOCLOPRAMIDE [Concomitant]
     Active Substance: METOCLOPRAMIDE
  11. OMEPRAZOLE [Concomitant]
     Active Substance: OMEPRAZOLE
  12. PSEUDOEPH-BROMPHEN-DM [Concomitant]
  13. SINGULAIR [Concomitant]
     Active Substance: MONTELUKAST SODIUM
  14. TEMOVATE [Concomitant]
     Active Substance: CLOBETASOL PROPIONATE
  15. VERAPAMIL [Concomitant]
     Active Substance: VERAPAMIL HYDROCHLORIDE
  16. ZITHROMAX [Concomitant]
     Active Substance: AZITHROMYCIN DIHYDRATE
  17. ZOLADEX [Concomitant]
     Active Substance: GOSERELIN ACETATE
  18. ZOMETA [Concomitant]
     Active Substance: ZOLEDRONIC ACID

REACTIONS (3)
  - Back pain [None]
  - Pain in extremity [None]
  - Blood glucose fluctuation [None]
